FAERS Safety Report 13151259 (Version 1)
Quarter: 2017Q1

REPORT INFORMATION
  Report Type: Spontaneous
  Country: GB (occurrence: GB)
  Receive Date: 20170124
  Receipt Date: 20170124
  Transmission Date: 20170428
  Serious: Yes (Death, Hospitalization, Other)
  Sender: FDA-Public Use
  Company Number: GB-JNJFOC-20170110557

PATIENT

DRUGS (2)
  1. PARACETAMOL [Suspect]
     Active Substance: ACETAMINOPHEN
     Indication: PRODUCT USED FOR UNKNOWN INDICATION
     Dosage: MORE THAN 4 G/DAY
     Route: 065
  2. PARACETAMOL [Suspect]
     Active Substance: ACETAMINOPHEN
     Route: 065

REACTIONS (9)
  - Liver injury [Fatal]
  - Acute hepatic failure [Fatal]
  - Neutrophil count increased [Unknown]
  - Monocyte count decreased [Unknown]
  - Drug-induced liver injury [Fatal]
  - Suicidal ideation [Fatal]
  - Overdose [Fatal]
  - Lymphocyte count decreased [Unknown]
  - Natural killer cell count decreased [Unknown]
